FAERS Safety Report 11312730 (Version 1)
Quarter: 2015Q3

REPORT INFORMATION
  Report Type: Spontaneous
  Country: US (occurrence: US)
  Receive Date: 20150727
  Receipt Date: 20150727
  Transmission Date: 20151125
  Serious: No
  Sender: FDA-Public Use
  Company Number: US-ABBVIE-15P-163-1419976-00

PATIENT
  Sex: Female

DRUGS (2)
  1. SYNTHROID [Suspect]
     Active Substance: LEVOTHYROXINE SODIUM
     Indication: HYPOTHYROIDISM
     Dosage: 1 TAB DAILY ALTERNIATING WITH 75MCG
     Route: 065
     Dates: start: 2006
  2. SYNTHROID [Suspect]
     Active Substance: LEVOTHYROXINE SODIUM
     Indication: HYPOTHYROIDISM
     Dosage: 1 TAB DAILY ALTERNATING WITH 100MCG
     Route: 065
     Dates: start: 2006

REACTIONS (4)
  - Intentional product misuse [Not Recovered/Not Resolved]
  - Fatigue [Recovered/Resolved]
  - Panic attack [Recovered/Resolved]
  - Muscle spasms [Recovering/Resolving]
